FAERS Safety Report 14928881 (Version 3)
Quarter: 2018Q2

REPORT INFORMATION
  Report Type: Report from Study
  Country: JP (occurrence: JP)
  Receive Date: 20180523
  Receipt Date: 20180625
  Transmission Date: 20180711
  Serious: Yes (Death, Other)
  Sender: FDA-Public Use
  Company Number: JP-ASTRAZENECA-2017SE17664

PATIENT
  Age: 84 Year
  Sex: Female
  Weight: 42 kg

DRUGS (61)
  1. TAGRISSO [Suspect]
     Active Substance: OSIMERTINIB
     Indication: NON-SMALL CELL LUNG CANCER
     Route: 048
     Dates: start: 20170110, end: 20170214
  2. TAGRISSO [Suspect]
     Active Substance: OSIMERTINIB
     Indication: NON-SMALL CELL LUNG CANCER
     Route: 048
     Dates: start: 20171027, end: 20180209
  3. PL [Concomitant]
     Active Substance: ACETAMINOPHEN\CAFFEINE\PROMETHAZINE\SALICYLAMIDE
     Indication: NASOPHARYNGITIS
     Dosage: AFTER EVERY MEAL, DOSE UNKNOWN
     Route: 048
  4. XYZAL [Concomitant]
     Active Substance: LEVOCETIRIZINE DIHYDROCHLORIDE
     Indication: RASH
     Dosage: AFTER EVENING MEAL, DOSE UNKNOWN
     Route: 048
  5. MUCOSOLVAN L [Concomitant]
     Active Substance: AMBROXOL HYDROCHLORIDE
     Indication: PRODUCTIVE COUGH
     Dosage: AFTER BREAKFAST, DOSE UNKNOWN
     Route: 048
  6. CRAVIT [Concomitant]
     Active Substance: LEVOFLOXACIN
     Indication: CONJUNCTIVITIS
     Dosage: DOSE UNKNOWN
     Route: 047
  7. CEREKINON [Concomitant]
     Active Substance: TRIMEBUTINE
     Indication: DIARRHOEA
     Dosage: AFTER BREAKFAST AND EVENING MEAL, DOSE UNKNOWN
     Route: 048
  8. EURAX [Concomitant]
     Active Substance: CROTAMITON
     Indication: DRUG ERUPTION
     Dosage: 1 OR 2 TIMES, DOSE UNKNOWN
     Route: 062
  9. ZOPICLONE [Concomitant]
     Active Substance: ZOPICLONE
     Indication: INSOMNIA
     Dosage: BEFORE SLEEP, DOSE UNKNOWN
     Route: 048
  10. SUNRYTHM [Concomitant]
     Active Substance: PILSICAINIDE HYDROCHLORIDE
     Indication: ATRIAL FIBRILLATION
     Dosage: FOR PALPITATION ATTACK, DOSE UNKNOWN
     Route: 048
  11. RABEPRAZOLE [Concomitant]
     Active Substance: RABEPRAZOLE
     Dosage: BEFORE BREAKFAST, DOSE UNKNOWN
     Route: 048
  12. FOSAMAC 35MG [Concomitant]
     Indication: OSTEOPOROSIS
     Dosage: ON AWAKENING, DOSE UNKNOWN
     Route: 048
  13. PROTECADIN OD [Concomitant]
     Active Substance: LAFUTIDINE
     Indication: DIARRHOEA
     Dosage: AFTER EVENING MEAL, DOSE UNKNOWN
     Route: 048
  14. LOPEMIN [Concomitant]
     Active Substance: LOPERAMIDE HYDROCHLORIDE
     Indication: DIARRHOEA
     Dosage: AFTER BREAKFAST AND EVENING MEAL, DOSE UNKNOWN
     Route: 048
  15. FLUOROMETHOLONE. [Concomitant]
     Active Substance: FLUOROMETHOLONE
     Indication: CONJUNCTIVITIS
     Dosage: DOSE UNKNOWN
     Route: 047
  16. ELIQUIS [Concomitant]
     Active Substance: APIXABAN
     Indication: ATRIAL FIBRILLATION
     Dosage: AFTER BREAKFAST AND EVENING MEAL, DOSE UNKNOWN
     Route: 048
  17. ALTAT [Concomitant]
     Active Substance: ROXATIDINE ACETATE HYDROCHLORIDE
     Dosage: DOSE UNKNOWN
     Route: 042
  18. CIPROXAN [Concomitant]
     Active Substance: CIPROFLOXACIN
     Indication: PNEUMONIA
     Dosage: DOSE UNKNOWN
     Route: 042
  19. OMEPRAZOLE. [Concomitant]
     Active Substance: OMEPRAZOLE
     Dosage: DOSE UNKNOWN
     Route: 042
  20. TAGRISSO [Suspect]
     Active Substance: OSIMERTINIB
     Indication: NON-SMALL CELL LUNG CANCER
     Route: 048
     Dates: start: 20170913, end: 20171026
  21. TAGRISSO [Suspect]
     Active Substance: OSIMERTINIB
     Indication: NON-SMALL CELL LUNG CANCER
     Route: 048
     Dates: start: 20170913, end: 20171026
  22. AMLODIPINE [Concomitant]
     Active Substance: AMLODIPINE BESYLATE
     Indication: HYPERTENSION
     Dosage: AFTER BREAKFAST, DOSE UNKNOWN
     Route: 048
  23. CARBOCISTEINE [Concomitant]
     Active Substance: CARBOCYSTEINE
     Indication: PRODUCTIVE COUGH
     Dosage: AFTER EACH MEAL, DOSE UNKNOWN
     Route: 048
  24. ALENDRONATE [Concomitant]
     Active Substance: ALENDRONATE SODIUM
     Indication: CONJUNCTIVITIS
     Dosage: ON AWAKENING, DOSE UNKNOWN
     Route: 048
  25. VASOLAN [Concomitant]
     Active Substance: VERAPAMIL HYDROCHLORIDE
     Indication: ATRIAL FIBRILLATION
     Dosage: DOSE UNKNOWN
     Route: 042
  26. MAGTECT [Concomitant]
     Indication: ABDOMINAL PAIN UPPER
     Dosage: BETWEEN MEALS, DOSE UNKNOWN
     Route: 048
  27. MORPHINE HYDROCHLORIDE [Concomitant]
     Active Substance: MORPHINE HYDROCHLORIDE
     Indication: DYSPNOEA
     Dosage: DOSE UNKNOWN
     Route: 042
  28. TAGRISSO [Suspect]
     Active Substance: OSIMERTINIB
     Indication: NON-SMALL CELL LUNG CANCER
     Route: 048
     Dates: start: 20171027, end: 20180209
  29. TAGRISSO [Suspect]
     Active Substance: OSIMERTINIB
     Indication: NON-SMALL CELL LUNG CANCER
     Route: 048
     Dates: start: 20170707, end: 20170912
  30. PHELLOBERIN [Concomitant]
     Active Substance: BERBERINE\GERANIUM
     Indication: DIARRHOEA
     Dosage: AFTER EVERY MEAL, DOSE UNKNOWN
     Route: 048
  31. THYRADIN S [Concomitant]
     Active Substance: LEVOTHYROXINE SODIUM
     Indication: HYPOTHYROIDISM
     Dosage: AFTER BREAKFAST, DOSE UNKNOWN
     Route: 048
  32. MUCOSTA [Concomitant]
     Active Substance: REBAMIPIDE
     Indication: CONJUNCTIVITIS
     Dosage: DOSE UNKNOWN
     Route: 047
  33. LULICON:CREAM [Concomitant]
     Indication: TINEA PEDIS
     Dosage: DOSE UNKNOWN
     Route: 062
  34. SOLU-MEDROL [Concomitant]
     Active Substance: METHYLPREDNISOLONE SODIUM SUCCINATE
     Indication: PNEUMONIA
     Dosage: DOSE UNKNOWN
     Route: 042
  35. BIOFERMIN [Concomitant]
     Active Substance: BACILLUS SUBTILIS\LACTOBACILLUS ACIDOPHILUS\STREPTOCOCCUS FAECAIS
     Indication: DIARRHOEA
     Dosage: AFTER EVERY MEAL, DOSE UNKNOWN
     Route: 048
  36. ANTEBATE [Concomitant]
     Active Substance: BETAMETHASONE DIPROPIONATE
     Indication: RASH
     Dosage: DOSE UNKNOWN
     Route: 062
  37. MAGNESIUM OXIDE. [Concomitant]
     Active Substance: MAGNESIUM OXIDE
     Indication: CONSTIPATION
     Dosage: BEFORE SLEEP, DOSE UNKNOWN
     Route: 048
  38. GASMOTIN [Concomitant]
     Active Substance: MOSAPRIDE CITRATE
     Dosage: AFTER BREAKFAST AND EVENING MEAL, DOSE UNKNOWN
     Route: 048
  39. NEOMALLERMIN [Concomitant]
     Active Substance: DEXCHLORPHENIRAMINE MALEATE
     Dosage: AFTER EVENING MEAL, DOSE UNKNOWN
     Route: 048
  40. LOCOID [Concomitant]
     Active Substance: HYDROCORTISONE BUTYRATE
     Indication: RASH
     Dosage: DOSE UNKNOWN
     Route: 062
  41. LOXOPROFEN SODIUM [Concomitant]
     Active Substance: LOXOPROFEN SODIUM
     Indication: BACK PAIN
     Dosage: AS REQUIRED FOR PAIN, DOSE UNKNOWN
     Route: 048
  42. AFTACH [Concomitant]
     Active Substance: TRIAMCINOLONE
     Indication: APHTHOUS ULCER
     Dosage: ONE OR TWO PIECES, DOSE UNKNOWN
     Route: 048
  43. FUROSEMIDE. [Concomitant]
     Active Substance: FUROSEMIDE
     Indication: OLIGURIA
     Dosage: DOSE UNKNOWN
     Route: 042
  44. MOSAPRIDE CITRATE [Concomitant]
     Active Substance: MOSAPRIDE CITRATE
     Indication: GASTRITIS
     Dosage: AFTER BREAKFAST AND EVENING MEAL, DOSE UNKNOWN
     Route: 048
  45. SIGMART [Concomitant]
     Active Substance: NICORANDIL
     Indication: ANGINA PECTORIS
     Dosage: AFTER BREAKFAST AND EVENING MEAL, DOSE UNKNOWN
     Route: 048
  46. ADOAIR [Concomitant]
     Active Substance: FLUTICASONE PROPIONATE\SALMETEROL XINAFOATE
     Indication: ASTHMA
     Route: 055
  47. RINDERON A [Concomitant]
     Active Substance: BETAMETHASONE SODIUM PHOSPHATE\NEOMYCIN SULFATE
     Indication: CONJUNCTIVITIS
     Dosage: DOSE UNKNOWN
     Route: 047
  48. POSTERISAN [Concomitant]
     Active Substance: LIDOCAINE
     Indication: HAEMORRHOIDS
     Dosage: INSERTED INTO THE ANUS OR APPLIED, DOSE UNKNOWN
     Route: 062
  49. MINOMYCIN [Concomitant]
     Active Substance: MINOCYCLINE HYDROCHLORIDE
     Indication: RASH
     Dosage: AFTER BREAKFAST AND EVENING MEAL, DOSE UNKNOWN
     Route: 048
  50. CEFTRIAXONE. [Concomitant]
     Active Substance: CEFTRIAXONE
     Indication: PNEUMONIA
     Dosage: DOSE UNKNOWN
     Route: 042
  51. TAGRISSO [Suspect]
     Active Substance: OSIMERTINIB
     Indication: NON-SMALL CELL LUNG CANCER
     Route: 048
     Dates: start: 20170223, end: 20170525
  52. TAGRISSO [Suspect]
     Active Substance: OSIMERTINIB
     Indication: NON-SMALL CELL LUNG CANCER
     Route: 048
     Dates: start: 20170623, end: 20170706
  53. NEXIUM CAPSULES 20MG [Concomitant]
     Dosage: BEFORE BREAKFAST, DOSE UNKNOWN
     Route: 048
  54. ANTEBATE [Concomitant]
     Active Substance: BETAMETHASONE DIPROPIONATE
     Indication: RASH
     Dosage: DOSE UNKNOWN
     Route: 062
  55. HIRUDOID [Concomitant]
     Active Substance: GLYCOSAMINOGLYCANS
     Indication: RASH
     Dosage: DOSE UNKNOWN
     Route: 062
  56. KENALOG [Concomitant]
     Active Substance: TRIAMCINOLONE ACETONIDE
     Indication: STOMATITIS
     Dosage: APPLIED 2 OR 3 TIMES, DOSE UNKNOWN
     Route: 062
  57. AMLODIN [Concomitant]
     Active Substance: AMLODIPINE BESYLATE
     Dosage: AFTER BREAKFAST, DOSE UNKNOWN
     Route: 048
  58. KERATINAMIN [Concomitant]
     Active Substance: UREA
     Indication: RASH
     Dosage: SEVERAL TIMES, DOSE UNKNOWN
     Route: 062
  59. TAKEPRON [Concomitant]
     Active Substance: LANSOPRAZOLE
     Dosage: AFTER BREAKFAST, DOSE UNKNOWN
     Route: 048
  60. CYTOTEC [Concomitant]
     Active Substance: MISOPROSTOL
     Indication: BACK PAIN
     Dosage: AS REQUIRED FOR PAIN, DOSE UNKNOWN
     Route: 048
  61. CALONAL [Concomitant]
     Active Substance: ACETAMINOPHEN
     Indication: CHEST PAIN
     Dosage: AFTER EACH MEAL, DOSE UNKNOWN
     Route: 048

REACTIONS (10)
  - Drug eruption [Recovered/Resolved]
  - Diarrhoea [Not Recovered/Not Resolved]
  - Paronychia [Not Recovered/Not Resolved]
  - Gastrointestinal disorder [Not Recovered/Not Resolved]
  - Stomatitis [Recovering/Resolving]
  - Rash [Unknown]
  - Conjunctivitis bacterial [Not Recovered/Not Resolved]
  - Eczema [Not Recovered/Not Resolved]
  - Interstitial lung disease [Fatal]
  - Dry skin [Not Recovered/Not Resolved]

NARRATIVE: CASE EVENT DATE: 20170209
